FAERS Safety Report 5040370-7 (Version None)
Quarter: 2006Q2

REPORT INFORMATION
  Report Type: 
  Country: None (occurrence: None)
  Receive Date: 20060630
  Receipt Date: 20060622
  Transmission Date: 20061013
  Serious: Yes (Hospitalization)
  Sender: FDA-Public Use
  Company Number: 2006PK01396

PATIENT
  Age: 12943 Day
  Sex: Female
  Weight: 61 kg

DRUGS (3)
  1. SEROQUEL [Suspect]
     Indication: SCHIZOAFFECTIVE DISORDER
     Route: 048
     Dates: start: 20050101, end: 20060223
  2. CISORDINOL DEPOT [Concomitant]
     Indication: SCHIZOAFFECTIVE DISORDER
     Dosage: 400 MG EVERY 10 DAYS
  3. QUILONORM RETARD [Concomitant]
     Indication: SCHIZOAFFECTIVE DISORDER

REACTIONS (1)
  - NEUTROPENIA [None]
